FAERS Safety Report 18908226 (Version 4)
Quarter: 2021Q3

REPORT INFORMATION
  Report Type: Spontaneous
  Country: JP (occurrence: JP)
  Receive Date: 20210218
  Receipt Date: 20210723
  Transmission Date: 20211014
  Serious: Yes (Other)
  Sender: FDA-Public Use
  Company Number: JP-JNJFOC-20210230296

PATIENT
  Age: 67 Year
  Sex: Male

DRUGS (10)
  1. DEXART [Concomitant]
     Active Substance: DEXAMETHASONE SODIUM PHOSPHATE
     Dosage: 6.6 MILLIGRAM, Q2WEEKS
     Route: 042
     Dates: start: 20180117, end: 20180328
  2. LANTUS XR [Concomitant]
     Active Substance: INSULIN GLARGINE
     Indication: DIABETES MELLITUS
     Dosage: 26 INTERNATIONAL UNIT, QD
     Route: 058
  3. DEXART [Concomitant]
     Active Substance: DEXAMETHASONE SODIUM PHOSPHATE
     Dosage: 6.6 MILLIGRAM, Q2WEEKS
     Route: 042
     Dates: start: 20180725, end: 20181226
  4. CANAGLIFLOZIN [Suspect]
     Active Substance: CANAGLIFLOZIN
     Indication: STEROID DIABETES
     Dosage: 100 MILLIGRAM, QD
     Route: 048
     Dates: start: 20190125, end: 201902
  5. HUMALOG [Concomitant]
     Active Substance: INSULIN LISPRO
     Indication: DIABETES MELLITUS
     Dosage: 21 INTERNATIONAL UNIT, QD
     Route: 058
  6. DEXART [Concomitant]
     Active Substance: DEXAMETHASONE SODIUM PHOSPHATE
     Indication: HEPATIC CANCER
     Dosage: 6.6 MILLIGRAM, Q2WEEKS
     Route: 042
     Dates: start: 20160719, end: 20161221
  7. TRAZENTA [Concomitant]
     Active Substance: LINAGLIPTIN
     Indication: DIABETES MELLITUS
     Dosage: 5 MILLIGRAM, QD
     Route: 048
  8. CANAGLIFLOZIN [Suspect]
     Active Substance: CANAGLIFLOZIN
     Indication: DIABETES MELLITUS
  9. DEXART [Concomitant]
     Active Substance: DEXAMETHASONE SODIUM PHOSPHATE
     Dosage: 6.6 MILLIGRAM, Q2WEEKS
     Route: 042
     Dates: start: 20170719, end: 20171220
  10. INSULIN [Concomitant]
     Active Substance: INSULIN NOS
     Indication: STEROID DIABETES
     Route: 048

REACTIONS (3)
  - Off label use [Unknown]
  - Pulmonary artery thrombosis [Recovering/Resolving]
  - Venous thrombosis limb [Recovering/Resolving]

NARRATIVE: CASE EVENT DATE: 20190204
